FAERS Safety Report 8024727-8 (Version None)
Quarter: 2012Q1

REPORT INFORMATION
  Report Type: 
  Country: None (occurrence: None)
  Receive Date: 20120105
  Receipt Date: 20111223
  Transmission Date: 20120608
  Serious: Yes (Life-Threatening, Hospitalization, Other)
  Sender: FDA-Public Use
  Company Number: US-ACTELION-A-US2011-57530

PATIENT

DRUGS (9)
  1. SILDENAFIL [Concomitant]
     Dosage: UNK
     Dates: start: 20060901, end: 20111101
  2. OXYGEN [Concomitant]
  3. FLUVAX [Concomitant]
  4. CALCIUM CHANNEL BLOCKERS [Concomitant]
  5. OMEPRAZOLE [Concomitant]
  6. PRAVASTATIN [Concomitant]
  7. TRACLEER [Suspect]
     Indication: PULMONARY ARTERIAL HYPERTENSION
     Dosage: 125 MG, BID
     Route: 048
     Dates: start: 20090804
  8. TRACLEER [Suspect]
     Dosage: UNK MG, UNK
     Route: 048
     Dates: start: 20090707, end: 20090803
  9. POTASSIUM CHLORIDE [Concomitant]

REACTIONS (8)
  - ATRIAL FIBRILLATION [None]
  - WEIGHT INCREASED [None]
  - CARDIAC FAILURE CONGESTIVE [None]
  - ALANINE AMINOTRANSFERASE INCREASED [None]
  - ASPARTATE AMINOTRANSFERASE INCREASED [None]
  - HEPATIC CONGESTION [None]
  - OEDEMA PERIPHERAL [None]
  - CARDIOVERSION [None]
